FAERS Safety Report 16007535 (Version 4)
Quarter: 2019Q1

REPORT INFORMATION
  Report Type: Report from Study
  Country: US (occurrence: US)
  Receive Date: 20190226
  Receipt Date: 20190328
  Transmission Date: 20190418
  Serious: Yes (Death, Other)
  Sender: FDA-Public Use
  Company Number: US-JNJFOC-20190201126

PATIENT

DRUGS (2)
  1. IBRUTINIB [Suspect]
     Active Substance: IBRUTINIB
     Indication: BING-NEEL SYNDROME
     Route: 048
  2. IBRUTINIB [Suspect]
     Active Substance: IBRUTINIB
     Indication: BING-NEEL SYNDROME
     Route: 048

REACTIONS (18)
  - Ventricular tachycardia [Unknown]
  - Fatigue [Unknown]
  - Nausea [Unknown]
  - Infection [Fatal]
  - Atrial fibrillation [Unknown]
  - Off label use [Unknown]
  - Pneumonia [Unknown]
  - Diarrhoea [Unknown]
  - Headache [Unknown]
  - Rash [Unknown]
  - Stomatitis [Unknown]
  - Arrhythmia [Unknown]
  - Drug intolerance [Unknown]
  - Incorrect dose administered [Unknown]
  - Contusion [Unknown]
  - Neutropenia [Unknown]
  - Haemorrhage [Unknown]
  - Muscle spasms [Unknown]
